FAERS Safety Report 9162436 (Version 4)
Quarter: 2013Q2

REPORT INFORMATION
  Report Type: Report from Study
  Country: US (occurrence: US)
  Receive Date: 20130314
  Receipt Date: 20130523
  Transmission Date: 20140414
  Serious: Yes (Hospitalization, Other)
  Sender: FDA-Public Use
  Company Number: US-ASTELLAS-2013US002399

PATIENT
  Age: 75 Year
  Sex: Female
  Weight: 100 kg

DRUGS (15)
  1. ERLOTINIB TABLET [Suspect]
     Indication: RENAL CELL CARCINOMA
     Dosage: 150 MG, UID/QD
     Route: 048
     Dates: start: 20121221, end: 20130205
  2. TIVANTINIB [Suspect]
     Indication: RENAL CELL CARCINOMA
     Dosage: 360 MG, BID
     Route: 048
     Dates: start: 20121221, end: 20130205
  3. TIVANTINIB [Suspect]
     Dosage: 720 MG, UID/QD
     Route: 048
     Dates: start: 20130308
  4. TIVANTINIB [Suspect]
     Dosage: 240 MG, BID
     Route: 048
  5. BENZONATATE [Concomitant]
     Indication: PRODUCT USED FOR UNKNOWN INDICATION
     Dosage: 100 MG, BID
     Route: 048
  6. CEPHALEXIN                         /00145501/ [Concomitant]
     Indication: PRODUCT USED FOR UNKNOWN INDICATION
     Dosage: 500 MG, QID
     Route: 048
  7. FUROSEMIDE [Concomitant]
     Indication: PRODUCT USED FOR UNKNOWN INDICATION
     Dosage: 20 MG, UID/QD
     Route: 048
  8. IPRATROPIUM BROMIDE [Concomitant]
     Indication: PRODUCT USED FOR UNKNOWN INDICATION
     Dosage: UNK
     Route: 055
  9. KETOCONAZOLE [Concomitant]
     Indication: PRODUCT USED FOR UNKNOWN INDICATION
     Dosage: 1-2 %, UNKNOWN/D
     Route: 061
  10. LORTAB                             /00607101/ [Concomitant]
     Indication: PAIN
     Dosage: 5 MG-500 MG, 2 TABLETS Q6 HOURS PRN
     Route: 048
  11. METOPROLOL TARTRATE [Concomitant]
     Indication: PRODUCT USED FOR UNKNOWN INDICATION
     Dosage: 50 MG, UID/QD
     Route: 048
  12. MINOCYCLINE HCL [Concomitant]
     Indication: PRODUCT USED FOR UNKNOWN INDICATION
     Dosage: 100 MG, UID/QD
     Route: 048
  13. PROAIR HFA [Concomitant]
     Indication: PRODUCT USED FOR UNKNOWN INDICATION
     Dosage: 1 INHALATION AS DIRECTED
     Route: 055
  14. SYNTHROID [Concomitant]
     Indication: PRODUCT USED FOR UNKNOWN INDICATION
     Dosage: 175 UG, UID/QD
     Route: 048
  15. DICLOXACILLIN SODIUM [Concomitant]
     Indication: PRODUCT USED FOR UNKNOWN INDICATION
     Dosage: 500 MG, QID
     Route: 048

REACTIONS (11)
  - Off label use [Unknown]
  - Toxicity to various agents [Unknown]
  - Anaemia [Recovered/Resolved with Sequelae]
  - Acute respiratory failure [Unknown]
  - Interstitial lung disease [Unknown]
  - Duodenal ulcer [Recovered/Resolved]
  - Malignant neoplasm progression [Unknown]
  - Skin ulcer [Unknown]
  - Nausea [Unknown]
  - Vomiting [Unknown]
  - Asthenia [Unknown]
